FAERS Safety Report 8030086-7 (Version None)
Quarter: 2012Q1

REPORT INFORMATION
  Report Type: 
  Country: None (occurrence: None)
  Receive Date: 20120109
  Receipt Date: 20120102
  Transmission Date: 20120608
  Serious: Yes (Hospitalization, Other)
  Sender: FDA-Public Use
  Company Number: US-COVIDIEN/TYCO HEALTHCARE/MALLINCKRODT-T201200013

PATIENT
  Age: 20 Year
  Sex: Male

DRUGS (2)
  1. ALCOHOL [Concomitant]
  2. METHADOSE [Suspect]
     Dosage: UNK

REACTIONS (7)
  - RHABDOMYOLYSIS [None]
  - DEAFNESS [None]
  - ACCIDENTAL OVERDOSE [None]
  - PNEUMONIA ASPIRATION [None]
  - INTENTIONAL DRUG MISUSE [None]
  - PULMONARY OEDEMA [None]
  - VOMITING [None]
